FAERS Safety Report 8775205 (Version 2)
Quarter: 2012Q4

REPORT INFORMATION
  Report Type: 
  Country: US (occurrence: US)
  Receive Date: 20120913
  Receipt Date: 20121126
  Transmission Date: 20130627
  Serious: Yes (Hospitalization, Disabling, Other)
  Sender: FDA-Public Use
  Company Number: US-PFIZER INC-2012221050

PATIENT
  Age: 51 Year
  Sex: Female
  Weight: 81.63 kg

DRUGS (3)
  1. LYRICA [Suspect]
     Indication: NEUROPATHY
     Dosage: UNK, 1x/day
     Route: 048
     Dates: start: 20101005, end: 201010
  2. LYRICA [Suspect]
     Indication: RESTLESS LEG SYNDROME
  3. INSULIN [Concomitant]
     Indication: INSULIN-DEPENDENT DIABETES MELLITUS
     Dosage: UNK

REACTIONS (15)
  - Acute febrile neutrophilic dermatosis [Not Recovered/Not Resolved]
  - Rash morbilliform [Not Recovered/Not Resolved]
  - Blister [Not Recovered/Not Resolved]
  - Respiratory arrest [Unknown]
  - Renal disorder [Unknown]
  - Foot deformity [Unknown]
  - Wheelchair user [Unknown]
  - Lung disorder [Unknown]
  - Impaired work ability [Unknown]
  - Musculoskeletal stiffness [Unknown]
  - Pain [Unknown]
  - Vomiting [Unknown]
  - Swelling [Unknown]
  - Depression [Unknown]
  - Scar [Recovering/Resolving]
